FAERS Safety Report 7917441-8 (Version None)
Quarter: 2011Q4

REPORT INFORMATION
  Report Type: 
  Country: None (occurrence: None)
  Receive Date: 20111116
  Receipt Date: 20111111
  Transmission Date: 20120403
  Serious: Yes (Hospitalization, Other)
  Sender: FDA-Public Use
  Company Number: BR-ABBOTT-11P-020-0873513-00

PATIENT
  Sex: Female
  Weight: 80 kg

DRUGS (4)
  1. MESALAMINE [Concomitant]
     Indication: CROHN'S DISEASE
     Route: 048
     Dates: start: 20111002
  2. CLONAZEPAM [Concomitant]
     Indication: DEPRESSION
     Dates: start: 20110909
  3. HUMIRA [Suspect]
     Indication: CROHN'S DISEASE
     Route: 058
     Dates: start: 20091101
  4. UNSPECIFIED MEDICATION [Concomitant]
     Indication: PRODUCT USED FOR UNKNOWN INDICATION

REACTIONS (9)
  - OEDEMA PERIPHERAL [None]
  - HEADACHE [None]
  - DIARRHOEA [None]
  - INFLUENZA [None]
  - CARDIAC ARREST [None]
  - IMMUNODEFICIENCY [None]
  - BLOOD PRESSURE INCREASED [None]
  - ACUTE PULMONARY OEDEMA [None]
  - ABDOMINAL PAIN [None]
